FAERS Safety Report 9673478 (Version 2)
Quarter: 2013Q4

REPORT INFORMATION
  Report Type: Spontaneous
  Country: US (occurrence: US)
  Receive Date: 20131106
  Receipt Date: 20131106
  Transmission Date: 20140711
  Serious: No
  Sender: FDA-Public Use
  Company Number: US-AMGEN-USASP2013069678

PATIENT
  Age: 28 Year
  Sex: Female
  Weight: 54.88 kg

DRUGS (2)
  1. ENBREL [Suspect]
     Indication: RHEUMATOID ARTHRITIS
     Dosage: UNK
     Route: 058
     Dates: start: 20130807, end: 20130923
  2. ENBREL [Suspect]
     Indication: JUVENILE IDIOPATHIC ARTHRITIS

REACTIONS (5)
  - Rash macular [Not Recovered/Not Resolved]
  - Burning sensation [Not Recovered/Not Resolved]
  - Pruritus [Not Recovered/Not Resolved]
  - Swelling [Not Recovered/Not Resolved]
  - Injection site reaction [Recovering/Resolving]
